FAERS Safety Report 9633188 (Version 3)
Quarter: 2013Q4

REPORT INFORMATION
  Report Type: Report from Study
  Country: MX (occurrence: MX)
  Receive Date: 20131020
  Receipt Date: 20131029
  Transmission Date: 20140711
  Serious: Yes (Death, Disabling, Other)
  Sender: FDA-Public Use
  Company Number: PHHY2012MX013300

PATIENT
  Age: 63 Year
  Sex: Female

DRUGS (1)
  1. STALEVO [Suspect]
     Indication: PARKINSON^S DISEASE
     Dosage: 4 TABLETS (200/150/37.5 MG) DAILY
     Route: 048
     Dates: start: 200905, end: 201204

REACTIONS (13)
  - Musculoskeletal stiffness [Fatal]
  - Immobile [Fatal]
  - Intervertebral disc displacement [Fatal]
  - Cardiac arrest [Fatal]
  - Terminal state [Fatal]
  - Pyrexia [Fatal]
  - Skin ulcer [Fatal]
  - Respiratory arrest [Fatal]
  - Drug ineffective [Fatal]
  - Depressed mood [Unknown]
  - Dysstasia [Unknown]
  - Asthenia [Unknown]
  - Drug effect delayed [Unknown]
